FAERS Safety Report 18877645 (Version 2)
Quarter: 2021Q1

REPORT INFORMATION
  Report Type: Spontaneous
  Country: JP (occurrence: JP)
  Receive Date: 20210211
  Receipt Date: 20210216
  Transmission Date: 20210420
  Serious: Yes (Other)
  Sender: FDA-Public Use
  Company Number: JP-ASTELLAS-2021US004679

PATIENT
  Sex: Male

DRUGS (3)
  1. FUNGUARD [Suspect]
     Active Substance: MICAFUNGIN SODIUM
     Indication: PRODUCT USED FOR UNKNOWN INDICATION
     Dosage: UNK UNK, UNKNOWN FREQ.
     Route: 041
  2. PRODIF [Concomitant]
     Active Substance: FOSFLUCONAZOLE
     Indication: PRODUCT USED FOR UNKNOWN INDICATION
     Dosage: UNK UNK, UNKNOWN FREQ.
     Route: 065
  3. AMPHOTERICIN B, LIPOSOME [Suspect]
     Active Substance: AMPHOTERICIN B
     Indication: CANDIDA SEPSIS
     Route: 041

REACTIONS (2)
  - Electrolyte imbalance [Recovered/Resolved]
  - Blood bilirubin increased [Recovered/Resolved]
